FAERS Safety Report 6441083-7 (Version None)
Quarter: 2009Q4

REPORT INFORMATION
  Report Type: 
  Country: None (occurrence: None)
  Receive Date: 20091116
  Receipt Date: 20091106
  Transmission Date: 20100525
  Serious: Yes (Other)
  Sender: FDA-Public Use
  Company Number: JP-ROCHE-668237

PATIENT

DRUGS (1)
  1. TAMIFLU [Suspect]
     Indication: INFLUENZA
     Dosage: FORM: ORAL FORMULATION UNSPECIFIED
     Route: 048

REACTIONS (3)
  - ABNORMAL BEHAVIOUR [None]
  - CRYING [None]
  - NIGHTMARE [None]
